FAERS Safety Report 19895323 (Version 1)
Quarter: 2021Q3

REPORT INFORMATION
  Report Type: Spontaneous
  Country: US (occurrence: US)
  Receive Date: 20210929
  Receipt Date: 20210929
  Transmission Date: 20211014
  Serious: No
  Sender: FDA-Public Use
  Company Number: US-SAREPTA THERAPEUTICS INC.-SRP2020-001130

PATIENT
  Age: 5 Year
  Sex: Male
  Weight: 20.3 kg

DRUGS (3)
  1. EXONDYS 51 [Suspect]
     Active Substance: ETEPLIRSEN
     Indication: DUCHENNE MUSCULAR DYSTROPHY
     Dosage: 600 MILLIGRAM, WEEKLY
     Route: 042
     Dates: start: 20200618, end: 20201203
  2. EXONDYS 51 [Suspect]
     Active Substance: ETEPLIRSEN
     Dosage: 600 MILLIGRAM, WEEKLY
     Route: 042
     Dates: start: 20201215
  3. PREDNISONE. [Concomitant]
     Active Substance: PREDNISONE
     Indication: PRODUCT USED FOR UNKNOWN INDICATION
     Dosage: 15 MILLIGRAM/ 5 ML
     Route: 065

REACTIONS (2)
  - Poor venous access [Unknown]
  - Intentional dose omission [Unknown]

NARRATIVE: CASE EVENT DATE: 20201210
